FAERS Safety Report 24168478 (Version 1)
Quarter: 2024Q3

REPORT INFORMATION
  Report Type: Spontaneous
  Country: US (occurrence: US)
  Receive Date: 20240802
  Receipt Date: 20240802
  Transmission Date: 20241017
  Serious: Yes (Other)
  Sender: JOHNSON AND JOHNSON
  Company Number: US-JNJFOC-20240769343

PATIENT

DRUGS (1)
  1. CARVYKTI [Suspect]
     Active Substance: CILTACABTAGENE AUTOLEUCEL
     Indication: Product used for unknown indication
     Route: 065

REACTIONS (8)
  - Cardiac arrest [Unknown]
  - Intestinal perforation [Unknown]
  - Intestinal ischaemia [Unknown]
  - Duodenal ulcer [Unknown]
  - Presyncope [Unknown]
  - Diarrhoea [Unknown]
  - Pneumatosis [Unknown]
  - Gastrointestinal polyp [Unknown]
